FAERS Safety Report 7360039-3 (Version None)
Quarter: 2011Q1

REPORT INFORMATION
  Report Type: 
  Country: None (occurrence: None)
  Receive Date: 20110317
  Receipt Date: 20110307
  Transmission Date: 20110831
  Serious: Yes (Hospitalization, Other)
  Sender: FDA-Public Use
  Company Number: US-AMGEN-USASP2011013197

PATIENT
  Age: 28 Year
  Sex: Female

DRUGS (13)
  1. NEUPOGEN [Suspect]
     Indication: FEBRILE NEUTROPENIA
  2. PREDNISONE TAB [Suspect]
     Indication: BURKITT'S LYMPHOMA
     Dosage: 100 MG, UNK
     Route: 048
  3. ALLOPURINOL [Concomitant]
  4. CYTARABINE [Suspect]
     Indication: BURKITT'S LYMPHOMA
     Dosage: 70 MG, UNK
     Route: 037
  5. OXYTOCIN [Concomitant]
  6. IFOSFAMIDE [Suspect]
     Indication: BURKITT'S LYMPHOMA
     Dosage: 1500 MG/M2, UNK
  7. DOXORUBICIN HCL [Suspect]
     Indication: BURKITT'S LYMPHOMA
     Dosage: 40 MG/M2, UNK
  8. MESNA [Suspect]
     Indication: BURKITT'S LYMPHOMA
     Dosage: 1500 MG/M2, UNK
     Route: 042
  9. RITUXIMAB [Suspect]
     Indication: BURKITT'S LYMPHOMA
     Dosage: 375 MG/M2, UNK
  10. CYCLOPHOSPHAMIDE [Suspect]
     Indication: BURKITT'S LYMPHOMA
     Dosage: 800 MG/M2, UNK
     Route: 042
  11. VINCRISTINE [Suspect]
     Indication: BURKITT'S LYMPHOMA
     Dosage: 2 MG, UNK
  12. ETOPOSIDE [Suspect]
     Indication: BURKITT'S LYMPHOMA
     Dosage: 60 MG/M2, UNK
  13. ANTIBIOTICS [Concomitant]
     Route: 042

REACTIONS (9)
  - PREMATURE LABOUR [None]
  - POSTPARTUM HAEMORRHAGE [None]
  - FEBRILE NEUTROPENIA [None]
  - VOMITING [None]
  - AMNIOTIC FLUID VOLUME DECREASED [None]
  - EROSIVE OESOPHAGITIS [None]
  - FOETAL GROWTH RESTRICTION [None]
  - VAGINAL HAEMORRHAGE [None]
  - NAUSEA [None]
